FAERS Safety Report 13230805 (Version 2)
Quarter: 2017Q1

REPORT INFORMATION
  Report Type: Spontaneous
  Country: JP (occurrence: JP)
  Receive Date: 20170214
  Receipt Date: 20170302
  Transmission Date: 20170428
  Serious: Yes (Hospitalization, Disabling)
  Sender: FDA-Public Use
  Company Number: JP-B.I. PHARMACEUTICALS,INC./RIDGEFIELD-2017-NB-000701

PATIENT
  Age: 46 Year
  Sex: Female
  Weight: 80 kg

DRUGS (4)
  1. LASIX [Suspect]
     Active Substance: FUROSEMIDE
     Route: 048
     Dates: end: 20170206
  2. JARDIANCE [Suspect]
     Active Substance: EMPAGLIFLOZIN
     Indication: TYPE 2 DIABETES MELLITUS
     Route: 048
     Dates: start: 201612, end: 20170206
  3. LASIX [Suspect]
     Active Substance: FUROSEMIDE
     Route: 048
  4. LASIX [Suspect]
     Active Substance: FUROSEMIDE
     Indication: HYPERTENSION
     Route: 048

REACTIONS (2)
  - Cerebral infarction [Recovered/Resolved with Sequelae]
  - Dehydration [Unknown]

NARRATIVE: CASE EVENT DATE: 20170204
